FAERS Safety Report 25187064 (Version 2)
Quarter: 2025Q2

REPORT INFORMATION
  Report Type: Spontaneous
  Country: DE (occurrence: DE)
  Receive Date: 20250411
  Receipt Date: 20250417
  Transmission Date: 20250716
  Serious: Yes (Other)
  Sender: SANDOZ
  Company Number: DE-BRISTOL-MYERS SQUIBB COMPANY-2025-041435

PATIENT
  Age: 55 Year
  Sex: Male

DRUGS (10)
  1. CARBOPLATIN [Suspect]
     Active Substance: CARBOPLATIN
     Indication: Non-small cell lung cancer
     Dosage: 721 MG, TIW
     Route: 042
     Dates: start: 20241107, end: 20241202
  2. OPDIVO [Suspect]
     Active Substance: NIVOLUMAB
     Indication: Non-small cell lung cancer
     Dosage: 360 MG, TIW
     Route: 042
     Dates: start: 20241106
  3. PEMETREXED [Suspect]
     Active Substance: PEMETREXED
     Route: 065
     Dates: start: 20241202
  4. PEMETREXED [Suspect]
     Active Substance: PEMETREXED
     Indication: Non-small cell lung cancer
     Route: 065
     Dates: start: 20241107
  5. YERVOY [Suspect]
     Active Substance: IPILIMUMAB
     Indication: Non-small cell lung cancer
     Route: 042
     Dates: start: 20241106
  6. APREPITANT [Concomitant]
     Active Substance: APREPITANT
     Indication: Prophylaxis
     Route: 065
     Dates: start: 20241107
  7. DEXAMETHASONE [Concomitant]
     Active Substance: DEXAMETHASONE
     Indication: Prophylaxis
     Route: 065
     Dates: start: 20241107
  8. GRANISETRON [Concomitant]
     Active Substance: GRANISETRON
     Indication: Prophylaxis
     Route: 065
     Dates: start: 20241107
  9. IBUPROFEN [Concomitant]
     Active Substance: IBUPROFEN
     Indication: Product used for unknown indication
     Route: 065
     Dates: start: 20240923
  10. TRAMADOL [Concomitant]
     Active Substance: TRAMADOL
     Indication: Product used for unknown indication
     Route: 065
     Dates: start: 20241001

REACTIONS (5)
  - Pancytopenia [Recovered/Resolved]
  - Dry skin [Recovering/Resolving]
  - Nausea [Recovered/Resolved]
  - Stomatitis [Recovered/Resolved]
  - Diarrhoea [Recovered/Resolved]

NARRATIVE: CASE EVENT DATE: 20241107
